FAERS Safety Report 9692717 (Version 1)
Quarter: 2013Q4

REPORT INFORMATION
  Report Type: Spontaneous
  Country: US (occurrence: None)
  Receive Date: 20131115
  Receipt Date: 20131115
  Transmission Date: 20140711
  Serious: No
  Sender: FDA-Public Use
  Company Number: None

PATIENT
  Sex: Male

DRUGS (1)
  1. ZYTIGA [Suspect]
     Indication: PRODUCT USED FOR UNKNOWN INDICATION
     Route: 048
     Dates: start: 20130625, end: 20131001

REACTIONS (13)
  - Decreased appetite [None]
  - Weight decreased [None]
  - Nausea [None]
  - Depression [None]
  - Crying [None]
  - Pyrexia [None]
  - Chest discomfort [None]
  - Anxiety [None]
  - Hypoaesthesia [None]
  - Hypoaesthesia [None]
  - Hypoaesthesia oral [None]
  - Dyspnoea [None]
  - Abdominal pain [None]
